FAERS Safety Report 9914277 (Version 1)
Quarter: 2014Q1

REPORT INFORMATION
  Report Type: Spontaneous
  Country: GB (occurrence: None)
  Receive Date: 20140218
  Receipt Date: 20140218
  Transmission Date: 20141002
  Serious: Yes (Other)
  Sender: FDA-Public Use
  Company Number: COL_15014_2014

PATIENT
  Age: 44 Year
  Sex: Male

DRUGS (1)
  1. COLGATE MAXIMUM CAVITY PROTECTION TOOTHPASTE GREAT REGULAR FLAVOUR [Suspect]
     Indication: PRODUCT USED FOR UNKNOWN INDICATION
     Dosage: NORMAL/ONCE/ORAL
     Route: 048
     Dates: start: 20140120, end: 20140120

REACTIONS (8)
  - Paraesthesia oral [None]
  - Lip swelling [None]
  - Oral pain [None]
  - Glossodynia [None]
  - Oropharyngeal pain [None]
  - Impaired driving ability [None]
  - Paraesthesia oral [None]
  - Paraesthesia oral [None]
